FAERS Safety Report 4378043-6 (Version None)
Quarter: 2004Q2

REPORT INFORMATION
  Report Type: 
  Country: None (occurrence: None)
  Receive Date: 20040609
  Receipt Date: 20040528
  Transmission Date: 20050107
  Serious: No
  Sender: FDA-Public Use
  Company Number: 2004UW11318

PATIENT
  Age: 65 Year
  Sex: Male
  Weight: 83.9154 kg

DRUGS (4)
  1. NEXIUM [Suspect]
     Dosage: 40 MG PO
     Route: 048
     Dates: start: 20040501
  2. LOSEC [Concomitant]
  3. VIAGRA [Concomitant]
  4. VIOXX [Concomitant]

REACTIONS (7)
  - ABDOMINAL DISTENSION [None]
  - ABDOMINAL PAIN UPPER [None]
  - CHROMATURIA [None]
  - JAUNDICE [None]
  - LETHARGY [None]
  - OCULAR ICTERUS [None]
  - PRURITUS [None]
